FAERS Safety Report 24256450 (Version 2)
Quarter: 2024Q4

REPORT INFORMATION
  Report Type: Report from Study
  Country: US (occurrence: US)
  Receive Date: 20240828
  Receipt Date: 20241004
  Transmission Date: 20250114
  Serious: No
  Sender: ABBVIE
  Company Number: US-ABBVIE-5888981

PATIENT
  Age: 56 Year
  Sex: Female

DRUGS (1)
  1. HUMIRA [Suspect]
     Active Substance: ADALIMUMAB
     Indication: Granuloma annulare
     Route: 058
     Dates: start: 20220930, end: 202405

REACTIONS (4)
  - Off label use [Unknown]
  - Pain [Unknown]
  - Rash macular [Unknown]
  - Granuloma annulare [Unknown]

NARRATIVE: CASE EVENT DATE: 20220601
